FAERS Safety Report 17150243 (Version 1)
Quarter: 2019Q4

REPORT INFORMATION
  Report Type: Spontaneous
  Country: US (occurrence: US)
  Receive Date: 20191213
  Receipt Date: 20191213
  Transmission Date: 20200122
  Serious: No
  Sender: FDA-Public Use
  Company Number: US-TEVA-2019-US-1153597

PATIENT
  Sex: Female
  Weight: 71.28 kg

DRUGS (1)
  1. EPOPROSTENOL. [Suspect]
     Active Substance: EPOPROSTENOL
     Dosage: STRENGHT: EPOPROSTENOL 1.5 MG/VIAL; DOSE: EPOPROSTENOL 30 NG PER KG PER MIN; FREQUENCY-CONTINUOS
     Route: 065
     Dates: start: 20150808

REACTIONS (5)
  - Pain [Unknown]
  - Device leakage [Unknown]
  - Dizziness [Unknown]
  - Malaise [Unknown]
  - Dyspnoea [Unknown]
